APPROVED DRUG PRODUCT: CLOZAPINE
Active Ingredient: CLOZAPINE
Strength: 100MG
Dosage Form/Route: TABLET;ORAL
Application: A074949 | Product #002 | TE Code: AB
Applicant: IVAX PHARMACEUTICALS INC SUB TEVA PHARMACEUTICALS USA
Approved: Nov 26, 1997 | RLD: No | RS: No | Type: RX